FAERS Safety Report 13073144 (Version 4)
Quarter: 2017Q1

REPORT INFORMATION
  Report Type: Report from Study
  Country: US (occurrence: US)
  Receive Date: 20161229
  Receipt Date: 20170208
  Transmission Date: 20170428
  Serious: Yes (Other)
  Sender: FDA-Public Use
  Company Number: US-BRISTOL-MYERS SQUIBB COMPANY-BMS-2016-094989

PATIENT
  Sex: Female

DRUGS (1)
  1. NIVOLUMAB [Suspect]
     Active Substance: NIVOLUMAB
     Indication: LUNG NEOPLASM MALIGNANT
     Route: 042

REACTIONS (26)
  - Full blood count decreased [Unknown]
  - Memory impairment [Unknown]
  - Malaise [Unknown]
  - Transfusion [Unknown]
  - Arthropathy [Unknown]
  - Clumsiness [Unknown]
  - Gastroenteritis viral [Unknown]
  - Visual impairment [Unknown]
  - Feeling abnormal [Unknown]
  - Diarrhoea [Unknown]
  - Increased appetite [Unknown]
  - Gait disturbance [Unknown]
  - Tremor [Unknown]
  - Faeces discoloured [Unknown]
  - Dyspnoea [Unknown]
  - Fatigue [Unknown]
  - Anaemia [Unknown]
  - Dizziness [Unknown]
  - Cough [Unknown]
  - Vomiting [Unknown]
  - Back pain [Unknown]
  - Pruritus [Unknown]
  - Neuropathy peripheral [Unknown]
  - Somnolence [Unknown]
  - Muscular weakness [Unknown]
  - Asthenia [Unknown]
